FAERS Safety Report 5951629-0 (Version None)
Quarter: 2008Q4

REPORT INFORMATION
  Report Type: 
  Country: None (occurrence: None)
  Receive Date: 20081110
  Receipt Date: 20081031
  Transmission Date: 20090506
  Serious: Yes (Hospitalization)
  Sender: FDA-Public Use
  Company Number: 100#03#2008-05514

PATIENT
  Age: 84 Year
  Sex: Female

DRUGS (4)
  1. CITALOPRAM HYDROBROMIDE [Suspect]
     Indication: DEPRESSION
     Dosage: 20 MG ONCE DAILY
     Route: 048
     Dates: end: 20081009
  2. CARBAMAZEPINE [Suspect]
     Indication: TRIGEMINAL NEURALGIA
     Dosage: 200 MG TWICE DAILY
     Route: 048
     Dates: end: 20081009
  3. ACETYLSALICYLIC ACID SRT [Concomitant]
  4. SIMVASTATIN [Concomitant]

REACTIONS (3)
  - CONFUSIONAL STATE [None]
  - FALL [None]
  - HYPONATRAEMIA [None]
